FAERS Safety Report 8117213-8 (Version None)
Quarter: 2012Q1

REPORT INFORMATION
  Report Type: 
  Country: None (occurrence: None)
  Receive Date: 20120206
  Receipt Date: 20120124
  Transmission Date: 20120608
  Serious: Yes (Other)
  Sender: FDA-Public Use
  Company Number: NL-ABBOTT-12P-114-0900016-00

PATIENT
  Sex: Female
  Weight: 74 kg

DRUGS (2)
  1. TAMOXIFEN CITRATE [Concomitant]
     Indication: BREAST CANCER FEMALE
     Route: 048
     Dates: start: 20110501
  2. LEUPROLIDE ACETATE [Suspect]
     Indication: BREAST CANCER FEMALE
     Route: 058
     Dates: start: 20110519

REACTIONS (4)
  - ARTHRALGIA [None]
  - HEADACHE [None]
  - ABDOMINAL DISTENSION [None]
  - BREAST CANCER [None]
